FAERS Safety Report 8195418-8 (Version None)
Quarter: 2012Q1

REPORT INFORMATION
  Report Type: 
  Country: None (occurrence: None)
  Receive Date: 20120308
  Receipt Date: 20120228
  Transmission Date: 20120608
  Serious: Yes (Hospitalization, Other)
  Sender: FDA-Public Use
  Company Number: PHHY2012FR017839

PATIENT
  Age: 8 Year
  Sex: Male
  Weight: 30 kg

DRUGS (2)
  1. RITALIN [Suspect]
     Dosage: 5 MG, BID
     Route: 048
     Dates: start: 20120113
  2. RITALIN [Suspect]
     Dosage: 5 MG, QD
     Route: 048
     Dates: start: 20120109, end: 20120120

REACTIONS (5)
  - EPILEPSY [None]
  - MUSCLE TIGHTNESS [None]
  - MALAISE [None]
  - MEMORY IMPAIRMENT [None]
  - HEADACHE [None]
